FAERS Safety Report 9537023 (Version 2)
Quarter: 2013Q3

REPORT INFORMATION
  Report Type: Report from Study
  Country: KR (occurrence: KR)
  Receive Date: 20130919
  Receipt Date: 20130919
  Transmission Date: 20140515
  Serious: Yes (Hospitalization, Other)
  Sender: FDA-Public Use
  Company Number: KR-BAYER-2013-104535

PATIENT
  Sex: Male

DRUGS (1)
  1. KOGENATE FS [Suspect]
     Indication: HAEMOPHILIA
     Dosage: DAILY DOSE 2000 IU
     Route: 042
     Dates: start: 20121218, end: 20130815

REACTIONS (4)
  - Fall [None]
  - Muscle haemorrhage [Recovering/Resolving]
  - Haemorrhage [Recovering/Resolving]
  - Antibody test positive [Recovering/Resolving]
